FAERS Safety Report 10417584 (Version 1)
Quarter: 2014Q3

REPORT INFORMATION
  Report Type: Spontaneous
  Country: US (occurrence: None)
  Receive Date: 20140828
  Receipt Date: 20140828
  Transmission Date: 20150326
  Serious: Yes (Death)
  Sender: FDA-Public Use
  Company Number: None

PATIENT
  Age: 62 Year
  Sex: Male

DRUGS (1)
  1. SUTENT [Suspect]
     Active Substance: SUNITINIB MALATE
     Indication: RENAL CANCER
     Dosage: 50 MG, DAILY FOR 28 DAYS, 14, PO
     Route: 048
     Dates: start: 20140610, end: 20140708

REACTIONS (2)
  - Asthenia [None]
  - Cerebrovascular accident [None]

NARRATIVE: CASE EVENT DATE: 20140822
